FAERS Safety Report 5068706-1 (Version None)
Quarter: 2006Q3

REPORT INFORMATION
  Report Type: 
  Country: None (occurrence: None)
  Receive Date: 20060802
  Receipt Date: 20060221
  Transmission Date: 20061208
  Serious: No
  Sender: FDA-Public Use
  Company Number: US-BRISTOL-MYERS SQUIBB COMPANY-13290945

PATIENT
  Age: 80 Year
  Sex: Male

DRUGS (9)
  1. COUMADIN [Suspect]
     Indication: ATRIAL FIBRILLATION
     Dosage: INITIATED A COUPLE OF YEARS AGO, CURRENT DOSE: 5 MG X 4 DAYS PER WK AND 2.5 MG 3 DAYS PER WK
  2. COUMADIN [Suspect]
     Indication: ATRIAL FIBRILLATION
     Dosage: INITIATED A COUPLE OF YEARS AGO, CURRENT DOSE: 5 MG X 4 DAYS PER WK AND 2.5 MG 3 DAYS PER WK
  3. COLACE [Concomitant]
  4. BENEFIBER [Concomitant]
  5. ZETIA [Concomitant]
  6. PROTONIX [Concomitant]
  7. METOPROLOL [Concomitant]
  8. VITAMINS [Concomitant]
  9. VITAMIN B-12 [Concomitant]

REACTIONS (1)
  - INTERNATIONAL NORMALISED RATIO ABNORMAL [None]
